FAERS Safety Report 21542244 (Version 5)
Quarter: 2024Q1

REPORT INFORMATION
  Report Type: Spontaneous
  Country: US (occurrence: US)
  Receive Date: 20221102
  Receipt Date: 20240112
  Transmission Date: 20240409
  Serious: No
  Sender: FDA-Public Use
  Company Number: US-PFIZER INC-PV202200094352

PATIENT
  Age: 74 Year
  Sex: Female

DRUGS (3)
  1. IBRANCE [Suspect]
     Active Substance: PALBOCICLIB
     Indication: Breast cancer
     Dosage: 125 MG, CYCLIC (D1- 21 Q28D, QHS)
     Dates: start: 20220726
  2. FULVESTRANT [Concomitant]
     Active Substance: FULVESTRANT
     Dosage: 500
     Route: 030
  3. XANAX [Concomitant]
     Active Substance: ALPRAZOLAM
     Dosage: 0.5 MG, DAILY,  AS NEEDED
     Dates: start: 20220809

REACTIONS (2)
  - Neoplasm progression [Unknown]
  - Cold-stimulus headache [Unknown]
